FAERS Safety Report 10566582 (Version 1)
Quarter: 2014Q4

REPORT INFORMATION
  Report Type: Spontaneous
  Country: DK (occurrence: DK)
  Receive Date: 20141105
  Receipt Date: 20141105
  Transmission Date: 20150529
  Serious: Yes (Hospitalization, Other)
  Sender: FDA-Public Use
  Company Number: DK-PFIZER INC-2014302253

PATIENT
  Age: 39 Year
  Sex: Male

DRUGS (13)
  1. CLOZAPINE. [Interacting]
     Active Substance: CLOZAPINE
     Indication: SCHIZOPHRENIA, PARANOID TYPE
     Dosage: 100 + 400  MG, 2X/DAY
  2. CLONAZEPAM. [Suspect]
     Active Substance: CLONAZEPAM
     Dosage: 0.5 MG, 1X/DAY
  3. PREGABALIN. [Interacting]
     Active Substance: PREGABALIN
     Indication: ANXIETY
     Dosage: 150 MG, DAILY
  4. CLONAZEPAM. [Suspect]
     Active Substance: CLONAZEPAM
     Indication: ANXIETY
     Dosage: 0.5 MG, 2X/DAY
  5. PREGABALIN. [Interacting]
     Active Substance: PREGABALIN
     Dosage: 525 MG, DAILY
  6. ATROPINE [Concomitant]
     Active Substance: ATROPINE
     Dosage: 0.25 MG, 3X/DAY
  7. PROPRANOLOL [Concomitant]
     Active Substance: PROPRANOLOL\PROPRANOLOL HYDROCHLORIDE
     Indication: ANXIETY
     Dosage: 30  + 10 MG
  8. PREGABALIN. [Interacting]
     Active Substance: PREGABALIN
     Dosage: 300 MG, DAILY
  9. PREGABALIN. [Suspect]
     Active Substance: PREGABALIN
     Indication: SCHIZOPHRENIA
     Dosage: 75 MG, DAILY
  10. PREGABALIN. [Interacting]
     Active Substance: PREGABALIN
     Dosage: 600 MG, DAILY
  11. PREGABALIN. [Interacting]
     Active Substance: PREGABALIN
     Dosage: 450 MG, DAILY
  12. AMISULPRIDE [Concomitant]
     Active Substance: AMISULPRIDE
     Dosage: 200 MG, 1X/DAY
  13. CITALOPRAM [Concomitant]
     Active Substance: CITALOPRAM HYDROBROMIDE
     Indication: ANXIETY
     Dosage: 20 MG, 1X/DAY

REACTIONS (9)
  - Loss of consciousness [Unknown]
  - Product use issue [Unknown]
  - Lower limb fracture [Unknown]
  - Drug interaction [Unknown]
  - Ankle fracture [Unknown]
  - Drug level increased [Unknown]
  - Foot fracture [Unknown]
  - Overdose [Unknown]
  - Seizure [Recovering/Resolving]
